FAERS Safety Report 13037734 (Version 8)
Quarter: 2017Q1

REPORT INFORMATION
  Report Type: Report from Study
  Country: US (occurrence: US)
  Receive Date: 20161217
  Receipt Date: 20170324
  Transmission Date: 20170428
  Serious: Yes (Hospitalization, Other)
  Sender: FDA-Public Use
  Company Number: US-GILEAD-2016-0247983

PATIENT
  Age: 56 Year
  Sex: Male

DRUGS (7)
  1. AMBRISENTAN [Suspect]
     Active Substance: AMBRISENTAN
     Dosage: 10 MG, QD
     Route: 065
     Dates: start: 20161109
  2. ELIQUIS [Concomitant]
     Active Substance: APIXABAN
  3. UPTRAVI [Concomitant]
     Active Substance: SELEXIPAG
  4. AMBRISENTAN [Suspect]
     Active Substance: AMBRISENTAN
     Indication: PRODUCT USED FOR UNKNOWN INDICATION
     Dosage: 5 MG, QD
     Route: 065
     Dates: start: 20161109
  5. DILTIAZEM. [Concomitant]
     Active Substance: DILTIAZEM
  6. REVATIO [Concomitant]
     Active Substance: SILDENAFIL CITRATE
  7. SILDENAFIL. [Concomitant]
     Active Substance: SILDENAFIL

REACTIONS (17)
  - Drug ineffective [Unknown]
  - Vomiting [Unknown]
  - Respiratory distress [Unknown]
  - Dysuria [Not Recovered/Not Resolved]
  - Pulmonary hypertension [Unknown]
  - Paracentesis [Unknown]
  - Constipation [Not Recovered/Not Resolved]
  - Weight decreased [Unknown]
  - Decreased appetite [Unknown]
  - Arthralgia [Unknown]
  - Nausea [Unknown]
  - Depression [Unknown]
  - Diarrhoea [Unknown]
  - Anaemia [Unknown]
  - Cardiac failure [Unknown]
  - Dyspnoea [Unknown]
  - Hypersomnia [Unknown]
